FAERS Safety Report 5269026-2 (Version None)
Quarter: 2007Q1

REPORT INFORMATION
  Report Type: 
  Country: None (occurrence: None)
  Receive Date: 20070319
  Receipt Date: 20070309
  Transmission Date: 20070707
  Serious: Yes (Other)
  Sender: FDA-Public Use
  Company Number: US-JNJFOC-20070302461

PATIENT
  Age: 25 Year
  Sex: Female

DRUGS (2)
  1. ULTRAM ER [Suspect]
     Indication: DENTAL TREATMENT
     Route: 048
  2. ANTIBIOTIC [Concomitant]
     Indication: DENTAL TREATMENT
     Route: 065

REACTIONS (3)
  - DIZZINESS [None]
  - LOSS OF CONSCIOUSNESS [None]
  - NAUSEA [None]
